FAERS Safety Report 12809949 (Version 1)
Quarter: 2016Q4

REPORT INFORMATION
  Report Type: Spontaneous
  Country: US (occurrence: US)
  Receive Date: 20161005
  Receipt Date: 20161005
  Transmission Date: 20170207
  Serious: No
  Sender: FDA-Public Use
  Company Number: US-ADAREPHARM-2016-US-000044

PATIENT
  Sex: Female

DRUGS (10)
  1. CENTRUM MATURE [Concomitant]
     Dosage: QD
  2. LOSARTAN. [Concomitant]
     Active Substance: LOSARTAN
  3. PREDNISOLONE. [Concomitant]
     Active Substance: PREDNISOLONE
     Dosage: QD
  4. DOCUSATE SODIUM. [Concomitant]
     Active Substance: DOCUSATE SODIUM
     Dosage: PRN
  5. KCL [Suspect]
     Active Substance: POTASSIUM CHLORIDE
     Indication: MINERAL SUPPLEMENTATION
     Dosage: BID
     Dates: start: 201603, end: 20160315
  6. XELJANZ [Concomitant]
     Active Substance: TOFACITINIB CITRATE
     Dosage: BID
  7. MYCOPHENOLATE [Concomitant]
     Active Substance: MYCOPHENOLIC ACID
     Dosage: BID
  8. VITAMIN D [Concomitant]
     Active Substance: CHOLECALCIFEROL
     Dosage: QD
  9. METOPROLOL. [Concomitant]
     Active Substance: METOPROLOL
     Dosage: BID
  10. LISINOPRIL. [Concomitant]
     Active Substance: LISINOPRIL
     Dosage: QD

REACTIONS (3)
  - Syncope [Recovered/Resolved]
  - Drug ineffective [Recovered/Resolved]
  - Product taste abnormal [Unknown]

NARRATIVE: CASE EVENT DATE: 201603
